FAERS Safety Report 17890808 (Version 1)
Quarter: 2020Q2

REPORT INFORMATION
  Report Type: Report from Study
  Country: GB (occurrence: GB)
  Receive Date: 20200612
  Receipt Date: 20200612
  Transmission Date: 20200714
  Serious: Yes (Hospitalization)
  Sender: FDA-Public Use
  Company Number: GB-EMD SERONO-9167291

PATIENT
  Age: 48 Year
  Sex: Male

DRUGS (2)
  1. MAVENCLAD [Suspect]
     Active Substance: CLADRIBINE
     Dosage: YEAR ONE WEEK TWO THERAPY: TWO TABLETS ON DAY 1 AND ONE TABLET ON DAYS 2 TO 5
     Route: 048
     Dates: start: 20191120
  2. MAVENCLAD [Suspect]
     Active Substance: CLADRIBINE
     Indication: MULTIPLE SCLEROSIS
     Dosage: YEAR ONE WEEK ONE THERAPY: TWO TABLETS ON DAY 1 AND ONE TABLET ON DAYS 2 TO 5
     Route: 048
     Dates: start: 20191021

REACTIONS (3)
  - Sepsis [Unknown]
  - Multiple sclerosis relapse [Unknown]
  - Skin ulcer [Unknown]

NARRATIVE: CASE EVENT DATE: 202002
